FAERS Safety Report 10074065 (Version 1)
Quarter: 2014Q2

REPORT INFORMATION
  Report Type: Spontaneous
  Country: US (occurrence: US)
  Receive Date: 20140412
  Receipt Date: 20140412
  Transmission Date: 20141212
  Serious: No
  Sender: FDA-Public Use
  Company Number: US-009507513-1404USA006066

PATIENT
  Age: 93 Year
  Sex: Female

DRUGS (1)
  1. COZAAR [Suspect]
     Route: 048

REACTIONS (2)
  - Wheezing [Unknown]
  - Swelling face [Unknown]
